FAERS Safety Report 9676243 (Version 1)
Quarter: 2013Q4

REPORT INFORMATION
  Report Type: Spontaneous
  Country: DE (occurrence: DE)
  Receive Date: 20131107
  Receipt Date: 20131107
  Transmission Date: 20140711
  Serious: Yes (Life-Threatening, Other)
  Sender: FDA-Public Use
  Company Number: DE-ASTRAZENECA-2013SE80750

PATIENT
  Age: 56 Year
  Sex: Female

DRUGS (20)
  1. QUETIAPINE [Suspect]
     Dosage: } 300 MG, DAILY
     Route: 048
     Dates: end: 20130115
  2. QUETIAPINE [Suspect]
     Route: 048
     Dates: start: 20130116, end: 20130128
  3. CLOZAPINE [Suspect]
     Dosage: 12.5 - 250 MG, DAILY
     Route: 048
     Dates: start: 20130114, end: 20130124
  4. CLOZAPINE [Suspect]
     Route: 048
     Dates: start: 20130125, end: 20130128
  5. CLOZAPINE [Suspect]
     Dosage: 200 - 100 MG, DAILY
     Route: 048
     Dates: start: 20130129, end: 20130213
  6. CLOZAPINE [Suspect]
     Dosage: 100 - 0 MG, DAILY
     Route: 048
     Dates: start: 20130214, end: 20130222
  7. GASTROZEPIN [Suspect]
     Route: 048
     Dates: start: 20130124, end: 20130227
  8. ABILIFY [Concomitant]
     Route: 048
     Dates: start: 20121218, end: 20130220
  9. ABILIFY [Concomitant]
     Route: 048
     Dates: start: 20130221, end: 20130222
  10. ABILIFY [Concomitant]
     Route: 048
     Dates: start: 20130223, end: 20130225
  11. LORAZEPAM [Concomitant]
     Dosage: 0.5 - 1.5 MG, DAILY
     Route: 048
     Dates: start: 20121217, end: 20130109
  12. LORAZEPAM [Concomitant]
     Route: 048
     Dates: start: 20130110, end: 20130115
  13. LORAZEPAM [Concomitant]
     Route: 048
     Dates: start: 20130116, end: 20130127
  14. LORAZEPAM [Concomitant]
     Route: 048
     Dates: start: 20130128, end: 20130129
  15. METOPROLOL [Concomitant]
     Route: 048
  16. RAMIPRIL [Concomitant]
     Route: 048
  17. PANTOPRAZOLE [Concomitant]
     Route: 048
  18. CEFPODOXIM [Concomitant]
     Dosage: 200 - 400 MG, DAILY
     Route: 048
     Dates: start: 20130125, end: 20130130
  19. ACC 200 [Concomitant]
     Route: 048
     Dates: start: 20130126, end: 20130205
  20. OTRIVEN [Concomitant]
     Dosage: FOUR TIMES A DAY
     Route: 045
     Dates: start: 20130125, end: 20130206

REACTIONS (3)
  - Delirium [Recovered/Resolved]
  - C-reactive protein increased [Unknown]
  - Antipsychotic drug level increased [Unknown]
